FAERS Safety Report 19793169 (Version 1)
Quarter: 2021Q3

REPORT INFORMATION
  Report Type: Other
  Country: US (occurrence: US)
  Receive Date: 20210906
  Receipt Date: 20210906
  Transmission Date: 20211014
  Serious: Yes (Other)
  Sender: FDA-Public Use
  Company Number: US-ROCHE-2901940

PATIENT
  Sex: Female

DRUGS (26)
  1. ACTEMRA [Suspect]
     Active Substance: TOCILIZUMAB
     Indication: RHEUMATOID ARTHRITIS
     Route: 058
     Dates: start: 20210311
  2. FLONASE [Concomitant]
     Active Substance: FLUTICASONE PROPIONATE
     Indication: HYPERSENSITIVITY
     Route: 045
     Dates: start: 20170628
  3. ACTEMRA [Suspect]
     Active Substance: TOCILIZUMAB
  4. DEPO?MEDROL [Concomitant]
     Active Substance: METHYLPREDNISOLONE ACETATE
     Dates: start: 20190512
  5. TURMERIC [Concomitant]
     Active Substance: HERBALS\TURMERIC
     Route: 048
  6. LEVOTHYROXINE SODIUM. [Concomitant]
     Active Substance: LEVOTHYROXINE SODIUM
     Indication: HYPOTHYROIDISM
     Route: 048
  7. BACLOFEN. [Concomitant]
     Active Substance: BACLOFEN
     Dosage: 1 TABLET
     Route: 048
  8. ATORVASTATIN CALCIUM. [Concomitant]
     Active Substance: ATORVASTATIN CALCIUM
     Indication: BLOOD CHOLESTEROL INCREASED
     Route: 048
  9. SERTRALINE HCL [Concomitant]
     Active Substance: SERTRALINE HYDROCHLORIDE
     Indication: DEPRESSION
     Route: 048
     Dates: start: 20200827
  10. MIRTAZAPINE. [Concomitant]
     Active Substance: MIRTAZAPINE
     Route: 048
  11. ZYRTEC [Concomitant]
     Active Substance: CETIRIZINE HYDROCHLORIDE
     Indication: HYPERSENSITIVITY
     Route: 048
  12. METFORMIN HYDROCHLORIDE. [Concomitant]
     Active Substance: METFORMIN HYDROCHLORIDE
     Indication: DIABETES MELLITUS
     Route: 048
     Dates: start: 20201002
  13. KETOROLAC TROMETHAMINE. [Concomitant]
     Active Substance: KETOROLAC TROMETHAMINE
  14. ASPIRIN. [Concomitant]
     Active Substance: ASPIRIN
     Route: 048
  15. CEFTRIAXONE. [Concomitant]
     Active Substance: CEFTRIAXONE
     Dates: start: 20190512
  16. ACETAMINOPHEN;HYDROCODONE [Concomitant]
     Active Substance: ACETAMINOPHEN\HYDROCODONE
     Indication: PAIN
     Route: 048
     Dates: start: 20210322
  17. PROAIR HFA [Concomitant]
     Active Substance: ALBUTEROL SULFATE
     Indication: DYSPNOEA
     Route: 048
     Dates: start: 20190117
  18. BUPROPION HCL [Concomitant]
     Active Substance: BUPROPION HYDROCHLORIDE
     Route: 048
  19. PANTOPRAZOLE SODIUM. [Concomitant]
     Active Substance: PANTOPRAZOLE SODIUM
     Indication: GASTRITIS
  20. TORADOL [Concomitant]
     Active Substance: KETOROLAC TROMETHAMINE
  21. HYDROXYZINE HCL [Concomitant]
     Active Substance: HYDROXYZINE HYDROCHLORIDE
     Route: 048
  22. KETOROLAC [Concomitant]
     Active Substance: KETOROLAC TROMETHAMINE
     Dates: start: 20201002
  23. LIDOCAINE HCL [Concomitant]
     Active Substance: LIDOCAINE HYDROCHLORIDE
     Dates: start: 20190512
  24. CIMZIA [Concomitant]
     Active Substance: CERTOLIZUMAB PEGOL
     Route: 058
     Dates: start: 20210126
  25. PROAIR HFA [Concomitant]
     Active Substance: ALBUTEROL SULFATE
     Indication: WHEEZING
  26. LYRICA [Concomitant]
     Active Substance: PREGABALIN
     Indication: FIBROMYALGIA
     Route: 048
     Dates: start: 20161027

REACTIONS (1)
  - Kidney infection [Unknown]
